FAERS Safety Report 13741663 (Version 1)
Quarter: 2017Q3

REPORT INFORMATION
  Report Type: Spontaneous
  Country: US (occurrence: US)
  Receive Date: 20170711
  Receipt Date: 20170711
  Transmission Date: 20171127
  Serious: Yes (Life-Threatening, Hospitalization)
  Sender: FDA-Public Use
  Company Number: None

PATIENT
  Age: 56 Year
  Sex: Female

DRUGS (1)
  1. LOSARTAN. [Suspect]
     Active Substance: LOSARTAN
     Indication: HYPERTENSION
     Route: 048
     Dates: start: 20160421, end: 20160530

REACTIONS (4)
  - Respiratory failure [None]
  - Angioedema [None]
  - Aspiration [None]
  - Acute respiratory failure [None]

NARRATIVE: CASE EVENT DATE: 20160530
